FAERS Safety Report 7820228-8 (Version None)
Quarter: 2011Q4

REPORT INFORMATION
  Report Type: 
  Country: None (occurrence: None)
  Receive Date: 20111018
  Receipt Date: 20111004
  Transmission Date: 20120403
  Serious: Yes (Hospitalization, Other)
  Sender: FDA-Public Use
  Company Number: TW-ELI_LILLY_AND_COMPANY-TW201110001551

PATIENT
  Age: 44 Year
  Sex: Female

DRUGS (6)
  1. OLANZAPINE [Suspect]
     Dosage: 25 MG, QD
  2. THYROXIN [Concomitant]
     Indication: HYPOTHYROIDISM
     Dosage: 50 UG, QD
  3. OLANZAPINE [Suspect]
     Dosage: 20 MG, QD
  4. OLANZAPINE [Suspect]
     Indication: SCHIZOPHRENIA, PARANOID TYPE
     Dosage: 10 MG, QD
  5. BROMAZEPAM [Concomitant]
     Dosage: 9 MG, QD
  6. ZOPICLONE [Concomitant]
     Dosage: 7.5 MG, QD

REACTIONS (2)
  - DRUG INTERACTION [None]
  - LEUKOPENIA [None]
